FAERS Safety Report 7549340-8 (Version None)
Quarter: 2011Q2

REPORT INFORMATION
  Report Type: 
  Country: None (occurrence: None)
  Receive Date: 20110615
  Receipt Date: 20010619
  Transmission Date: 20111010
  Serious: Yes (Death)
  Sender: FDA-Public Use
  Company Number: PHBS2001TR13369

PATIENT
  Age: 73 Year
  Sex: Male

DRUGS (1)
  1. EXELON [Suspect]
     Dosage: 3 MG, BID

REACTIONS (1)
  - DEATH [None]
